FAERS Safety Report 18843144 (Version 1)
Quarter: 2021Q1

REPORT INFORMATION
  Report Type: Report from Study
  Country: ES (occurrence: ES)
  Receive Date: 20210203
  Receipt Date: 20210203
  Transmission Date: 20210419
  Serious: No
  Sender: FDA-Public Use
  Company Number: ES-EXELIXIS-CABO-19026110

PATIENT
  Sex: Male

DRUGS (2)
  1. CABOMETYX [Suspect]
     Active Substance: CABOZANTINIB S-MALATE
     Dosage: UNK
     Route: 048
  2. CABOMETYX [Suspect]
     Active Substance: CABOZANTINIB S-MALATE
     Indication: METASTATIC RENAL CELL CARCINOMA
     Dosage: UNK
     Route: 048

REACTIONS (13)
  - Illness [Unknown]
  - Pain [Unknown]
  - Dyspepsia [Unknown]
  - Feeling abnormal [Unknown]
  - Back pain [Unknown]
  - Blood pressure decreased [Unknown]
  - Pain in extremity [Unknown]
  - Fatigue [Unknown]
  - Vomiting [Unknown]
  - Mouth ulceration [Unknown]
  - Taste disorder [Unknown]
  - Decreased appetite [Unknown]
  - Blood pressure increased [Unknown]
